FAERS Safety Report 7981981-6 (Version None)
Quarter: 2011Q4

REPORT INFORMATION
  Report Type: 
  Country: None (occurrence: None)
  Receive Date: 20111215
  Receipt Date: 20111209
  Transmission Date: 20120403
  Serious: Yes (Death, Hospitalization)
  Sender: FDA-Public Use
  Company Number: US-CELGENEUS-163-21880-11121683

PATIENT
  Sex: Male

DRUGS (10)
  1. MULTI-VITAMINS [Concomitant]
     Route: 065
  2. REVLIMID [Suspect]
     Indication: MULTIPLE MYELOMA
     Dosage: 10 MILLIGRAM
     Route: 048
     Dates: start: 20110929, end: 20111018
  3. CASODEX [Concomitant]
     Indication: PROSTATE CANCER
     Route: 065
     Dates: start: 20110301, end: 20111101
  4. PROTONIX [Concomitant]
     Route: 065
  5. IRON [Concomitant]
     Route: 065
  6. TYLENOL (CAPLET) [Concomitant]
     Route: 065
  7. REMERON [Concomitant]
     Route: 065
  8. CARDIZEM CD [Concomitant]
     Route: 065
  9. AZITHROMYCIN [Concomitant]
     Route: 065
  10. ALLOPURINOL [Concomitant]
     Route: 065

REACTIONS (3)
  - SEPSIS [None]
  - PANCYTOPENIA [None]
  - FEBRILE NEUTROPENIA [None]
